FAERS Safety Report 8480171-0 (Version None)
Quarter: 2012Q2

REPORT INFORMATION
  Report Type: 
  Country: None (occurrence: None)
  Receive Date: 20120629
  Receipt Date: 20120626
  Transmission Date: 20120825
  Serious: Yes (Hospitalization, Disabling, Other)
  Sender: FDA-Public Use
  Company Number: US-MERCK-1203USA03306

PATIENT
  Age: 81 Year
  Sex: Female

DRUGS (3)
  1. FOSAMAX [Suspect]
     Indication: OSTEOPOROSIS
     Route: 048
     Dates: start: 19980101, end: 20110101
  2. FOSAMAX [Suspect]
     Route: 048
     Dates: start: 20091201, end: 20120601
  3. FOSAMAX [Suspect]
     Route: 048
     Dates: start: 20011205

REACTIONS (29)
  - OSTEOPOROSIS [None]
  - CEREBROVASCULAR ACCIDENT [None]
  - HYPOTHYROIDISM [None]
  - HYPERTHYROIDISM [None]
  - LOW TURNOVER OSTEOPATHY [None]
  - HEPATITIS [None]
  - DEEP VEIN THROMBOSIS [None]
  - OVERDOSE [None]
  - DIZZINESS [None]
  - MYOCARDIAL INFARCTION [None]
  - ASTHMA [None]
  - SPINAL OSTEOARTHRITIS [None]
  - TRANSIENT ISCHAEMIC ATTACK [None]
  - CORONARY ARTERY DISEASE [None]
  - DIABETES MELLITUS [None]
  - FEMUR FRACTURE [None]
  - GASTRIC ULCER [None]
  - MULTIPLE FRACTURES [None]
  - HYPERTENSION [None]
  - CAROTID BRUIT [None]
  - CHRONIC OBSTRUCTIVE PULMONARY DISEASE [None]
  - DISLOCATION OF VERTEBRA [None]
  - ARTHROPATHY [None]
  - PHLEBITIS [None]
  - INAPPROPRIATE SCHEDULE OF DRUG ADMINISTRATION [None]
  - BREAST CANCER [None]
  - OSTEOPENIA [None]
  - ARTHRALGIA [None]
  - TOXIC NODULAR GOITRE [None]
